FAERS Safety Report 4395225-8 (Version None)
Quarter: 2004Q3

REPORT INFORMATION
  Report Type: 
  Country: None (occurrence: None)
  Receive Date: 20040706
  Receipt Date: 20040629
  Transmission Date: 20050211
  Serious: Yes (Life-Threatening, Hospitalization, Other)
  Sender: FDA-Public Use
  Company Number: 2004-04-0220

PATIENT
  Age: 56 Year
  Sex: Female
  Weight: 48 kg

DRUGS (3)
  1. INTRON A [Suspect]
     Indication: CHRONIC HEPATITIS
     Dosage: SEE IMAGE
     Route: 030
     Dates: start: 20020803, end: 20020823
  2. INTRON A [Suspect]
     Indication: CHRONIC HEPATITIS
     Dosage: SEE IMAGE
     Route: 030
     Dates: start: 20020803, end: 20040330
  3. INTRON A [Suspect]
     Indication: CHRONIC HEPATITIS
     Dosage: SEE IMAGE
     Route: 030
     Dates: start: 20020826, end: 20040330

REACTIONS (5)
  - ANTI-GAD ANTIBODY POSITIVE [None]
  - DIABETES MELLITUS INSULIN-DEPENDENT [None]
  - HEPATIC CIRRHOSIS [None]
  - HEPATITIS C [None]
  - PORTAL VEIN THROMBOSIS [None]
